FAERS Safety Report 19236495 (Version 1)
Quarter: 2021Q2

REPORT INFORMATION
  Report Type: Spontaneous
  Country: SE (occurrence: SE)
  Receive Date: 20210510
  Receipt Date: 20210510
  Transmission Date: 20210717
  Serious: Yes (Life-Threatening, Hospitalization, Disabling)
  Sender: FDA-Public Use
  Company Number: SE-ORION CORPORATION ORION PHARMA-21_00014249

PATIENT
  Age: 69 Year
  Sex: Female
  Weight: 63 kg

DRUGS (4)
  1. OFTAGEL [Concomitant]
     Active Substance: CARBOMER
     Dosage: STRENGTH: 2.5 MG ?3 (UNIT UNKNOWN)?IN BOTH EYES
     Route: 065
  2. PREDNISOLON ALTERNOVA [Concomitant]
     Active Substance: PREDNISOLONE
     Dosage: 1 TABLET IF NEEDED, EXTREMELY RARELY ?STRENGTH: 5 MG
     Route: 065
  3. METHOTREXATE ORION [Suspect]
     Active Substance: METHOTREXATE
     Indication: RHEUMATOID ARTHRITIS
     Dosage: 2.5 MG 3 TABLETS 1 TIME/WEEK
     Route: 048
     Dates: start: 20191101, end: 20210212
  4. FOLSYRA EVOLAN [Concomitant]
     Dosage: STRENGTH: 5 MG
     Route: 065

REACTIONS (5)
  - Platelet count decreased [Unknown]
  - Spinal compression fracture [Recovering/Resolving]
  - Thrombosis [Recovered/Resolved with Sequelae]
  - Loss of consciousness [Recovered/Resolved with Sequelae]
  - Epilepsy [Recovered/Resolved with Sequelae]

NARRATIVE: CASE EVENT DATE: 20210212
